FAERS Safety Report 7367090-8 (Version None)
Quarter: 2011Q1

REPORT INFORMATION
  Report Type: 
  Country: None (occurrence: None)
  Receive Date: 20110322
  Receipt Date: 20100719
  Transmission Date: 20110831
  Serious: Yes (Hospitalization)
  Sender: FDA-Public Use
  Company Number: US-TYCO HEALTHCARE/MALLINCKRODT-T201001639

PATIENT
  Sex: Female

DRUGS (1)
  1. METHADOSE DISPERSIBLE [Suspect]
     Indication: DRUG WITHDRAWAL MAINTENANCE THERAPY
     Dosage: 110 MG, QD
     Route: 048

REACTIONS (1)
  - TORSADE DE POINTES [None]
